FAERS Safety Report 25766613 (Version 3)
Quarter: 2025Q4

REPORT INFORMATION
  Report Type: Spontaneous
  Country: RU (occurrence: RU)
  Receive Date: 20250905
  Receipt Date: 20251030
  Transmission Date: 20260117
  Serious: Yes (Other)
  Sender: NOVARTIS
  Company Number: RU-002147023-NVSC2025RU137171

PATIENT
  Age: 73 Year
  Sex: Female

DRUGS (6)
  1. EXFORGE [Suspect]
     Active Substance: AMLODIPINE BESYLATE\VALSARTAN
     Indication: Hypertension
     Dosage: 85 MG, QD (5MG+80 MG)
     Route: 048
     Dates: start: 2015
  2. METOPROLOL [Concomitant]
     Active Substance: METOPROLOL
     Indication: Symptomatic treatment
     Dosage: 50 MG (1 TABLET) (ZOK)
     Route: 065
  3. EMOXYPINE SUCCINATE [Concomitant]
     Active Substance: EMOXYPINE SUCCINATE
     Indication: Product used for unknown indication
     Dosage: UNK
     Route: 065
  4. Combilipen [Concomitant]
     Indication: Product used for unknown indication
     Dosage: UNK
     Route: 065
  5. CHOLINE ALFOSCERATE [Concomitant]
     Active Substance: CHOLINE ALFOSCERATE
     Indication: Product used for unknown indication
     Dosage: UNK
     Route: 065
  6. METFORMIN [Concomitant]
     Active Substance: METFORMIN HYDROCHLORIDE
     Indication: Product used for unknown indication
     Dosage: UNK
     Route: 065

REACTIONS (3)
  - Blood pressure increased [Recovered/Resolved]
  - Drug ineffective [Unknown]
  - Counterfeit product administered [Unknown]

NARRATIVE: CASE EVENT DATE: 20250828
